FAERS Safety Report 25304936 (Version 1)
Quarter: 2025Q2

REPORT INFORMATION
  Report Type: Spontaneous
  Country: DE (occurrence: DE)
  Receive Date: 20250513
  Receipt Date: 20250513
  Transmission Date: 20250716
  Serious: Yes (Hospitalization, Other)
  Sender: BIOLOGICAL E. LIMITED
  Company Number: DE-BELUSA-2025BELLIT0025

PATIENT

DRUGS (1)
  1. HEPARIN SODIUM [Suspect]
     Active Substance: HEPARIN SODIUM
     Indication: Cardiovascular event prophylaxis
     Route: 065

REACTIONS (2)
  - Autoimmune heparin-induced thrombocytopenia [Recovered/Resolved]
  - Pulmonary embolism [Recovered/Resolved]
